FAERS Safety Report 6963696-6 (Version None)
Quarter: 2010Q3

REPORT INFORMATION
  Report Type: 
  Country: None (occurrence: None)
  Receive Date: 20100902
  Receipt Date: 20100826
  Transmission Date: 20110219
  Serious: No
  Sender: FDA-Public Use
  Company Number: US-US-EMD SERONO, INC.-7015883

PATIENT
  Sex: Female

DRUGS (4)
  1. REBIF [Suspect]
     Indication: PRODUCT USED FOR UNKNOWN INDICATION
     Route: 058
     Dates: start: 20100611
  2. UNSPECIFIED MEDICATION [Concomitant]
     Indication: DEPRESSION
  3. UNSPECIFIED MEDICATION [Concomitant]
     Indication: BIPOLAR DISORDER
  4. ACETAMINOPHEN [Concomitant]
     Indication: PREMEDICATION

REACTIONS (5)
  - BALANCE DISORDER [None]
  - BIPOLAR DISORDER [None]
  - DEPRESSION [None]
  - DRUG DOSE OMISSION [None]
  - INJECTION SITE ERYTHEMA [None]
